FAERS Safety Report 8401932-X (Version None)
Quarter: 2012Q2

REPORT INFORMATION
  Report Type: 
  Country: None (occurrence: None)
  Receive Date: 20120601
  Receipt Date: 20120525
  Transmission Date: 20120825
  Serious: Yes (Other)
  Sender: FDA-Public Use
  Company Number: CO-PFIZER INC-2012128803

PATIENT
  Age: 42 Year
  Sex: Male

DRUGS (5)
  1. TRILEPTAL [Concomitant]
     Indication: CEREBROVASCULAR ACCIDENT
     Dosage: 400 MG DAILY
     Route: 048
     Dates: start: 20070101
  2. GABAPENTIN [Suspect]
     Indication: CEREBROVASCULAR ACCIDENT
     Dosage: UNK
     Dates: start: 20080101, end: 20080101
  3. NIFEDIPINE [Concomitant]
     Indication: HYPERTENSION
     Dosage: UNK
     Dates: start: 20070101
  4. TRILEPTAL [Concomitant]
     Dosage: 600 MG DAILY
     Route: 048
     Dates: start: 20070101
  5. LOSARTAN [Concomitant]
     Indication: HYPERTENSION
     Dosage: UNK
     Dates: start: 20070101

REACTIONS (3)
  - DISCOMFORT [None]
  - CONVULSION [None]
  - TREMOR [None]
